FAERS Safety Report 11551819 (Version 1)
Quarter: 2015Q3

REPORT INFORMATION
  Report Type: Spontaneous
  Country: US (occurrence: US)
  Receive Date: 20150903
  Receipt Date: 20150903
  Transmission Date: 20151125
  Serious: No
  Sender: FDA-Public Use
  Company Number: US-ELI_LILLY_AND_COMPANY-US201005003823

PATIENT
  Age: 78 Year
  Sex: Male

DRUGS (3)
  1. AVELOX [Concomitant]
     Active Substance: MOXIFLOXACIN HYDROCHLORIDE
     Indication: LOWER RESPIRATORY TRACT INFECTION
     Dosage: 400 MG, DAILY (1/D)
     Dates: start: 20100511
  2. HUMALOG [Suspect]
     Active Substance: INSULIN LISPRO
     Indication: DIABETES MELLITUS
  3. HUMALOG MIX75/25 [Suspect]
     Active Substance: INSULIN LISPRO
     Indication: DIABETES MELLITUS
     Dosage: UNK, AS NEEDED

REACTIONS (2)
  - Lower respiratory tract infection [Unknown]
  - Diplopia [Unknown]

NARRATIVE: CASE EVENT DATE: 20100511
